FAERS Safety Report 13179507 (Version 1)
Quarter: 2017Q1

REPORT INFORMATION
  Report Type: Spontaneous
  Country: US (occurrence: US)
  Receive Date: 20170202
  Receipt Date: 20170202
  Transmission Date: 20170428
  Serious: Yes (Hospitalization, Other)
  Sender: FDA-Public Use
  Company Number: US-PFIZER INC-2017040110

PATIENT
  Age: 65 Year
  Sex: Male
  Weight: 124 kg

DRUGS (9)
  1. LANTUS [Concomitant]
     Active Substance: INSULIN GLARGINE
     Indication: DIABETES MELLITUS
     Dosage: 60 IU, 2X/DAY, IN THE MORNING AND AT NIGHT
  2. METOPROLOL. [Concomitant]
     Active Substance: METOPROLOL
     Indication: HEART RATE IRREGULAR
     Dosage: 125 MG, 2X/DAY, IN THE MORNING AND AT NIGHT
  3. REQUIP [Concomitant]
     Active Substance: ROPINIROLE HYDROCHLORIDE
     Indication: RESTLESS LEGS SYNDROME
     Dosage: 3 MG, 1X/DAY, IN THE EVENING
  4. ELIQUIS [Concomitant]
     Active Substance: APIXABAN
     Indication: ANTICOAGULANT THERAPY
     Dosage: 5 MG, 2X/DAY
  5. CRESTOR [Concomitant]
     Active Substance: ROSUVASTATIN CALCIUM
     Indication: BLOOD CHOLESTEROL ABNORMAL
     Dosage: 20 MG, 1X/DAY
  6. BOSULIF [Suspect]
     Active Substance: BOSUTINIB MONOHYDRATE
     Indication: LEUKAEMIA
     Dosage: 400 MG, DAILY
     Route: 048
     Dates: start: 2015
  7. NOVOLOG [Concomitant]
     Active Substance: INSULIN ASPART
     Indication: DIABETES MELLITUS
     Dosage: UNK, SLIDING SCALE WITH MEALS
  8. GABAPENTIN. [Concomitant]
     Active Substance: GABAPENTIN
     Indication: DIABETIC NEUROPATHY
     Dosage: 100 MG, 3X/DAY
  9. DONEPEZIL. [Concomitant]
     Active Substance: DONEPEZIL
     Indication: MEMORY IMPAIRMENT
     Dosage: 10 MG, 1X/DAY, IN THE EVENING

REACTIONS (13)
  - Myocardial infarction [Recovering/Resolving]
  - Bone disorder [Unknown]
  - Pyrexia [Unknown]
  - Poor peripheral circulation [Unknown]
  - Fatigue [Unknown]
  - Wound [Unknown]
  - Blood glucose decreased [Unknown]
  - Hyperkeratosis [Unknown]
  - Arterial occlusive disease [Unknown]
  - Atrial fibrillation [Unknown]
  - Confusional state [Unknown]
  - Laceration [Unknown]
  - Asthenia [Unknown]

NARRATIVE: CASE EVENT DATE: 201612
